FAERS Safety Report 4482686-9 (Version None)
Quarter: 2004Q4

REPORT INFORMATION
  Report Type: 
  Country: None (occurrence: None)
  Receive Date: 20041022
  Receipt Date: 20040917
  Transmission Date: 20050328
  Serious: Yes (Disabling, Other)
  Sender: FDA-Public Use
  Company Number: PHRM2004FR02862

PATIENT
  Age: 83 Year
  Sex: Female
  Weight: 76 kg

DRUGS (7)
  1. LESCOL [Suspect]
     Indication: HYPERCHOLESTEROLAEMIA
     Dosage: 40 MG, QD
     Route: 048
     Dates: start: 20030526, end: 20040831
  2. KARDEGIC [Concomitant]
     Dosage: 160 MG, QD
     Route: 048
  3. BUFLOMEDIL [Concomitant]
     Dosage: 150 MG, TID
     Route: 048
  4. LEVOTHYROX [Concomitant]
     Dosage: 100 UG, QD
     Route: 048
  5. LASILIX [Concomitant]
     Dosage: 40 MG, QD
     Route: 048
     Dates: start: 20040726
  6. APROVEL [Concomitant]
     Dosage: 75 MG, QD
     Route: 048
     Dates: start: 20030906
  7. ZOLOFT [Concomitant]
     Dosage: 50 MG, QD
     Route: 048
     Dates: start: 20031104

REACTIONS (4)
  - GAIT DISTURBANCE [None]
  - PAIN IN EXTREMITY [None]
  - POLYNEUROPATHY [None]
  - SENSORY LOSS [None]
